FAERS Safety Report 7203736-2 (Version None)
Quarter: 2010Q4

REPORT INFORMATION
  Report Type: 
  Country: None (occurrence: None)
  Receive Date: 20101230
  Receipt Date: 20101209
  Transmission Date: 20110411
  Serious: No
  Sender: FDA-Public Use
  Company Number: US-B.I. PHARMACEUTICALS,INC./RIDGEFIELD-2010-BP-14167BP

PATIENT
  Sex: Female

DRUGS (15)
  1. PRADAXA [Suspect]
     Indication: THROMBOSIS PROPHYLAXIS
     Dosage: 300 MG
     Route: 048
     Dates: start: 20101112
  2. SYNTHROID [Concomitant]
     Indication: HYPOTHYROIDISM
     Dosage: 50 MCG
     Route: 048
     Dates: start: 19920101
  3. LIPITOR [Concomitant]
     Indication: BLOOD CHOLESTEROL INCREASED
     Dosage: 20 MG
     Route: 048
     Dates: start: 20050101
  4. TIKOSYN [Concomitant]
     Indication: ATRIAL FIBRILLATION
     Dosage: 50 MG
     Route: 048
     Dates: start: 20090101
  5. AVALIDE [Concomitant]
     Indication: HYPERTENSION
     Dosage: 300/12.5, ONE TABLET DAILY
     Route: 048
     Dates: start: 20100801
  6. ZEBETA [Concomitant]
     Indication: HYPERTENSION
     Dosage: 10 MG
     Route: 048
     Dates: start: 20050101
  7. SPIRONOLACTONE [Concomitant]
     Indication: FLUID RETENTION
     Dosage: 12.5 MG
     Route: 048
     Dates: start: 20100601
  8. COUMADIN [Concomitant]
     Indication: ANTICOAGULANT THERAPY
     Dosage: 2.5MG ON M,W AND F
     Route: 048
     Dates: start: 20101201
  9. COUMADIN [Concomitant]
     Dosage: T,TH, SAT AND SUN
     Route: 048
     Dates: start: 20101201
  10. ASPIRIN [Concomitant]
     Indication: PROPHYLAXIS
     Dosage: 81 MG
     Route: 048
  11. CALCIUM AND VITAMIN D [Concomitant]
     Dosage: ONE DAILY
     Route: 048
  12. ASCORBIC ACID [Concomitant]
     Dosage: ONE DAILY
     Route: 048
  13. MULTI-VITAMIN [Concomitant]
     Dosage: ONE DAILY
     Route: 048
  14. FISH OIL CAPSULES [Concomitant]
     Dosage: 2400 MG
     Route: 048
     Dates: start: 20070101
  15. ACETAMINOPHEN [Concomitant]
     Dosage: 650 MG PRN
     Route: 048

REACTIONS (3)
  - ABDOMINAL DISCOMFORT [None]
  - INSOMNIA [None]
  - PRURITUS [None]
